FAERS Safety Report 25962069 (Version 1)
Quarter: 2025Q4

REPORT INFORMATION
  Report Type: Spontaneous
  Country: US (occurrence: None)
  Receive Date: 20251024
  Receipt Date: 20251024
  Transmission Date: 20260118
  Serious: Yes (Death)
  Sender: FDA-CTU
  Company Number: None

PATIENT
  Age: 67 Year
  Sex: Male

DRUGS (2)
  1. CREON [Suspect]
     Active Substance: PANCRELIPASE AMYLASE\PANCRELIPASE LIPASE\PANCRELIPASE PROTEASE
     Indication: Pancreatic carcinoma
     Dosage: 10 AN- AS NECESSARY DAO;U PR;
     Route: 048
     Dates: start: 20250623, end: 20251020
  2. HALOPERIDOL [Concomitant]
     Active Substance: HALOPERIDOL
     Dates: start: 20251005, end: 20251020

REACTIONS (1)
  - Death [None]

NARRATIVE: CASE EVENT DATE: 20251020
